FAERS Safety Report 7802878-8 (Version None)
Quarter: 2011Q4

REPORT INFORMATION
  Report Type: 
  Country: None (occurrence: None)
  Receive Date: 20111007
  Receipt Date: 20110929
  Transmission Date: 20120403
  Serious: Yes (Hospitalization)
  Sender: FDA-Public Use
  Company Number: FR-TEVA-303295ISR

PATIENT
  Sex: Male

DRUGS (7)
  1. LEXOMIL [Concomitant]
  2. LYRICA [Concomitant]
  3. THYMOGLOBULIN [Suspect]
     Route: 042
     Dates: start: 20110909, end: 20110910
  4. BUSULFAN [Suspect]
     Route: 042
     Dates: start: 20110907, end: 20110908
  5. FLUDARABINE PHOSPHATE [Suspect]
     Route: 042
     Dates: start: 20110906, end: 20110910
  6. ALFUZOSIN HCL [Concomitant]
  7. CYCLOSPORINE [Concomitant]
     Indication: IMMUNOSUPPRESSION

REACTIONS (6)
  - SEPSIS [None]
  - HEPATITIS ACUTE [None]
  - ACUTE RESPIRATORY DISTRESS SYNDROME [None]
  - ACUTE PULMONARY OEDEMA [None]
  - CYTOLYTIC HEPATITIS [None]
  - ENTEROCOCCUS TEST POSITIVE [None]
